FAERS Safety Report 8764305 (Version 1)
Quarter: 2012Q4

REPORT INFORMATION
  Report Type: 
  Country: US (occurrence: US)
  Receive Date: 20120831
  Receipt Date: 20120831
  Transmission Date: 20130627
  Serious: Yes (Other)
  Sender: FDA-Public Use
  Company Number: US-PFIZER INC-2012211842

PATIENT
  Age: 62 Year
  Sex: Male
  Weight: 98.41 kg

DRUGS (8)
  1. CHANTIX [Suspect]
     Indication: SMOKING CESSATION THERAPY
     Dosage: 0.5 mg, 1x/day
     Route: 048
     Dates: start: 2008, end: 2008
  2. CHANTIX [Suspect]
     Dosage: 0.5 mg, 1x/day
     Route: 048
     Dates: start: 20120823
  3. CHANTIX [Suspect]
     Dosage: 0.5 mg, 2x/day
     Route: 048
  4. PLAVIX [Concomitant]
     Indication: CARDIAC DISORDER
     Dosage: UNK
  5. AMLODIPINE [Concomitant]
     Indication: HYPERTENSION
     Dosage: 5 mg, UNK
  6. PRILOSEC [Concomitant]
     Dosage: 20 mg, UNK
  7. XANAX [Concomitant]
     Dosage: 1 mg, UNK
  8. AMBIEN [Concomitant]
     Dosage: 10 mg, UNK

REACTIONS (4)
  - Red blood cell count increased [Unknown]
  - Blood iron increased [Unknown]
  - Hypertension [Unknown]
  - Body height decreased [Unknown]
